FAERS Safety Report 21039961 (Version 1)
Quarter: 2022Q3

REPORT INFORMATION
  Report Type: Report from Study
  Country: US (occurrence: US)
  Receive Date: 20220704
  Receipt Date: 20220704
  Transmission Date: 20221027
  Serious: Yes (Other)
  Sender: FDA-Public Use
  Company Number: US-TAKEDA-2018TUS002928

PATIENT
  Age: 73 Year
  Sex: Female

DRUGS (9)
  1. VEDOLIZUMAB [Suspect]
     Active Substance: VEDOLIZUMAB
     Indication: Crohn^s disease
     Dosage: 300 MILLIGRAM
     Route: 042
     Dates: start: 201709
  2. LYRICA [Concomitant]
     Active Substance: PREGABALIN
     Dosage: UNK UNK, QD
  3. RISPERDAL [Concomitant]
     Active Substance: RISPERIDONE
     Dosage: UNK UNK, QD
  4. DOXEPIN [Concomitant]
     Active Substance: DOXEPIN
     Dosage: UNK UNK, QD
  5. PROPANOLOL                         /00030001/ [Concomitant]
     Dosage: UNK UNK, QD
  6. PANTOPRAZOLE [Concomitant]
     Active Substance: PANTOPRAZOLE
     Dosage: UNK UNK, QD
  7. ONDANSETRON [Concomitant]
     Active Substance: ONDANSETRON
     Dosage: UNK UNK, QD
  8. MARINOL                            /00003301/ [Concomitant]
     Dosage: UNK
  9. BOTOX [Concomitant]
     Active Substance: ONABOTULINUMTOXINA
     Dosage: UNK
     Dates: start: 201801

REACTIONS (20)
  - Crohn^s disease [Recovering/Resolving]
  - Sjogren^s syndrome [Unknown]
  - Stress [Recovered/Resolved]
  - Diarrhoea [Recovered/Resolved]
  - Decreased appetite [Not Recovered/Not Resolved]
  - Anal incontinence [Recovered/Resolved]
  - Aphonia [Recovered/Resolved]
  - Pain [Unknown]
  - Anaemia [Unknown]
  - Poor quality sleep [Unknown]
  - White blood cell count increased [Unknown]
  - Conjunctivitis [Unknown]
  - Dry eye [Unknown]
  - Asthenia [Recovered/Resolved]
  - Cystitis [Unknown]
  - Hyperhidrosis [Recovered/Resolved]
  - Fatigue [Recovered/Resolved]
  - Oropharyngeal pain [Recovered/Resolved]
  - Nasopharyngitis [Recovered/Resolved]
  - Nausea [Recovered/Resolved]

NARRATIVE: CASE EVENT DATE: 20180201
